FAERS Safety Report 4501583-3 (Version None)
Quarter: 2004Q3

REPORT INFORMATION
  Report Type: 
  Country: None (occurrence: None)
  Receive Date: 20040928
  Receipt Date: 20040823
  Transmission Date: 20050211
  Serious: No
  Sender: FDA-Public Use
  Company Number: 04P-163-0271292-00

PATIENT
  Age: 38 Year
  Sex: Female
  Weight: 102.9665 kg

DRUGS (8)
  1. HUMIRA [Suspect]
     Indication: RHEUMATOID ARTHRITIS
     Dosage: 40 MG, 1 IN 1 WK, SUBCUTANEOUS
     Route: 058
     Dates: start: 20040607
  2. AZATHIOPRINE [Concomitant]
  3. CELECOXIB [Concomitant]
  4. HYDROCHLOROTHIAZIDE [Concomitant]
  5. LEVOTHYROXINE SODIUM [Concomitant]
  6. SINGULAIR [Concomitant]
  7. NARINE REPETABS [Concomitant]
  8. CYANOCOBALAMIN [Concomitant]

REACTIONS (3)
  - COUGH [None]
  - PHARYNGOLARYNGEAL PAIN [None]
  - STOMATITIS [None]
